FAERS Safety Report 7622583-0 (Version None)
Quarter: 2011Q3

REPORT INFORMATION
  Report Type: 
  Country: None (occurrence: None)
  Receive Date: 20110719
  Receipt Date: 20110719
  Transmission Date: 20111222
  Serious: Yes (Hospitalization, Other)
  Sender: FDA-Public Use
  Company Number: None

PATIENT
  Age: 33 Year
  Sex: Male
  Weight: 97.5234 kg

DRUGS (3)
  1. DOXYCYCLINE HYCLATE [Suspect]
     Indication: PROPHYLAXIS
     Dosage: 2 CAPSULES 2X/DAILY FOR 2 DAY
     Dates: start: 20110616, end: 20110617
  2. DOXYCYCLINE HYCLATE [Suspect]
     Indication: LYME DISEASE
     Dosage: 2 CAPSULES 2X/DAILY FOR 2 DAY
     Dates: start: 20110616, end: 20110617
  3. DOXYCYCLINE HYCLATE [Suspect]
     Dosage: 1 CAPSULE 2X/DAILY FOR 8 DAY

REACTIONS (6)
  - CHEST DISCOMFORT [None]
  - DISORIENTATION [None]
  - PANIC ATTACK [None]
  - MYOCARDIAL INFARCTION [None]
  - PALPITATIONS [None]
  - BUNDLE BRANCH BLOCK LEFT [None]
